FAERS Safety Report 13092022 (Version 1)
Quarter: 2017Q1

REPORT INFORMATION
  Report Type: Spontaneous
  Country: BR (occurrence: BR)
  Receive Date: 20170106
  Receipt Date: 20170106
  Transmission Date: 20170428
  Serious: Yes (Hospitalization)
  Sender: FDA-Public Use
  Company Number: BR-ASTRAZENECA-2016SF18230

PATIENT
  Age: 59 Year
  Sex: Male

DRUGS (6)
  1. ATENOLOL. [Suspect]
     Active Substance: ATENOLOL
     Indication: BLOOD PRESSURE ABNORMAL
     Route: 048
     Dates: start: 2011
  2. BRILINTA [Suspect]
     Active Substance: TICAGRELOR
     Indication: MYOCARDIAL INFARCTION
     Route: 048
     Dates: start: 20160802, end: 20161002
  3. LOSARTAN. [Concomitant]
     Active Substance: LOSARTAN
     Indication: BLOOD PRESSURE ABNORMAL
     Dosage: DAILY
     Route: 048
  4. METFORMIN [Concomitant]
     Active Substance: METFORMIN HYDROCHLORIDE
     Indication: DIABETES MELLITUS
     Dosage: DAILY
     Route: 048
  5. ASA [Concomitant]
     Active Substance: ASPIRIN
     Indication: MYOCARDIAL INFARCTION
  6. CARVEDILOL. [Suspect]
     Active Substance: CARVEDILOL
     Indication: MYOCARDIAL INFARCTION
     Dosage: DAILY
     Route: 048
     Dates: start: 20160802, end: 20161002

REACTIONS (6)
  - Inguinal hernia [Recovered/Resolved]
  - Fatigue [Recovered/Resolved]
  - Scrotal swelling [Recovered/Resolved]
  - Dizziness [Recovered/Resolved]
  - Myocardial infarction [Recovered/Resolved]
  - Decreased appetite [Recovered/Resolved]

NARRATIVE: CASE EVENT DATE: 2016
